FAERS Safety Report 22192263 (Version 1)
Quarter: 2023Q2

REPORT INFORMATION
  Report Type: Spontaneous
  Country: TR (occurrence: TR)
  Receive Date: 20230410
  Receipt Date: 20230410
  Transmission Date: 20230722
  Serious: Yes (Hospitalization)
  Sender: FDA-Public Use
  Company Number: TR-AMNEAL PHARMACEUTICALS-2023-AMRX-01125

PATIENT
  Age: 69 Year
  Sex: Male

DRUGS (1)
  1. DEXAMETHASONE [Suspect]
     Active Substance: DEXAMETHASONE
     Indication: COVID-19
     Dosage: 8 MG
     Route: 065

REACTIONS (1)
  - Mania [Recovering/Resolving]
